FAERS Safety Report 4766298-5 (Version None)
Quarter: 2005Q3

REPORT INFORMATION
  Report Type: 
  Country: None (occurrence: None)
  Receive Date: 20050909
  Receipt Date: 20050831
  Transmission Date: 20060218
  Serious: Yes (Hospitalization)
  Sender: FDA-Public Use
  Company Number: 2005-09-0010

PATIENT
  Sex: Male

DRUGS (3)
  1. TEMODAL [Suspect]
     Indication: GLIOBLASTOMA
     Dosage: UNK X 5-DAYS ORAL
     Route: 048
  2. MEDROL [Concomitant]
  3. DEPAKENE [Concomitant]

REACTIONS (1)
  - CHOLESTASIS [None]
